FAERS Safety Report 14487440 (Version 1)
Quarter: 2018Q1

REPORT INFORMATION
  Report Type: Report from Study
  Country: DE (occurrence: DE)
  Receive Date: 20180205
  Receipt Date: 20180205
  Transmission Date: 20180509
  Serious: Yes (Death, Hospitalization, Other)
  Sender: FDA-Public Use
  Company Number: PHHY2018DE017938

PATIENT
  Sex: Male
  Weight: 93 kg

DRUGS (6)
  1. MONO-EMBOLEX [Concomitant]
     Active Substance: CERTOPARIN SODIUM
     Indication: PROPHYLAXIS
     Dosage: 300 UNK, QD
     Route: 058
  2. MELPERON [Concomitant]
     Active Substance: MELPERONE
     Indication: PROPHYLAXIS
     Dosage: 25 MG, QD
     Route: 048
  3. AFINITOR [Suspect]
     Active Substance: EVEROLIMUS
     Indication: METASTATIC RENAL CELL CARCINOMA
     Dosage: UNK
     Route: 048
     Dates: start: 20161201, end: 20170824
  4. LEVETIRACETAM. [Concomitant]
     Active Substance: LEVETIRACETAM
     Indication: PROPHYLAXIS
     Dosage: 750 MG, QD
     Route: 048
  5. OPIPRAMOL [Concomitant]
     Active Substance: OPIPRAMOL
     Indication: PROPHYLAXIS
     Dosage: 150 MG, QD
     Route: 048
  6. TORASEMID [Concomitant]
     Active Substance: TORSEMIDE
     Indication: PROPHYLAXIS
     Dosage: 5 MG, QD
     Route: 048

REACTIONS (6)
  - Metastatic renal cell carcinoma [Fatal]
  - Pulmonary hypertension [Not Recovered/Not Resolved]
  - Malignant neoplasm progression [Fatal]
  - Cardiac failure [Not Recovered/Not Resolved]
  - Pneumonia [Recovered/Resolved]
  - Chronic kidney disease [Not Recovered/Not Resolved]

NARRATIVE: CASE EVENT DATE: 20161221
